FAERS Safety Report 23127037 (Version 3)
Quarter: 2023Q4

REPORT INFORMATION
  Report Type: Report from Study
  Country: PT (occurrence: PT)
  Receive Date: 20231030
  Receipt Date: 20231108
  Transmission Date: 20240110
  Serious: Yes (Other)
  Sender: FDA-Public Use
  Company Number: PT-ABBVIE-5465739

PATIENT
  Age: 65 Year
  Sex: Male

DRUGS (7)
  1. CARBIDOPA\LEVODOPA [Suspect]
     Active Substance: CARBIDOPA\LEVODOPA
     Indication: Parkinson^s disease
     Dosage: 20 MG + 5 MG?FREQUENCY TEXT: MORN:9.5CC;MAINT:3.9CC/H; EXTR:3.5CC?START DATE WAS 2023
     Route: 050
     Dates: start: 2023
  2. CARBIDOPA\LEVODOPA [Suspect]
     Active Substance: CARBIDOPA\LEVODOPA
     Dosage: 20 MG + 5 MG?FREQUENCY TEXT: MORN:8CC;MAINT:2.8CC/H; EXTR:1CC, DISCONTINUED IN 2023
     Route: 050
     Dates: start: 20230213, end: 2023
  3. DOMPERIDONE [Concomitant]
     Active Substance: DOMPERIDONE
     Indication: Product used for unknown indication
     Dosage: TIME INTERVAL: 0.33333333 DAYS: FORM STRENGTH: 10 MILLIGRAM?START DATE TEXT: BEFORE DUODOPA
     Route: 048
  4. BENSERAZIDE\LEVODOPA [Concomitant]
     Active Substance: BENSERAZIDE\LEVODOPA
     Indication: Parkinson^s disease
     Dosage: 100MG + 25MG?FREQUENCY TEXT: 2 TABLETS AT BEDTIME?START DATE TEXT: BEFORE DUODOPA
     Route: 048
  5. RIVOTRIL [Concomitant]
     Active Substance: CLONAZEPAM
     Indication: Product used for unknown indication
     Dosage: 1 MILLILITER?FORM STRENGTH: 2.5 MILLIGRAM/MILLILITERS?FREQUENCY TEXT: AT BEDTIME?START DATE TEXT:...
     Route: 048
  6. Cyanocobalamina [Concomitant]
     Indication: Product used for unknown indication
     Dosage: 0.4MG + 0.002MG?FREQUENCY TEXT: 1 TABLET AT LUNCH ?START DATE TEXT: AFTER DUODOPA
  7. FOLIC ACID [Concomitant]
     Active Substance: FOLIC ACID
     Indication: Product used for unknown indication
     Dosage: 0.4MG + 0.002MG?FREQUENCY TEXT: 1 TABLET AT LUNCH ?START DATE TEXT: AFTER DUODOPA

REACTIONS (2)
  - Urinary retention [Recovered/Resolved]
  - Urinary tract infection [Recovered/Resolved]

NARRATIVE: CASE EVENT DATE: 20231001
